FAERS Safety Report 21980620 (Version 3)
Quarter: 2023Q2

REPORT INFORMATION
  Report Type: Spontaneous
  Country: DE (occurrence: DE)
  Receive Date: 20230211
  Receipt Date: 20230405
  Transmission Date: 20230722
  Serious: Yes (Death, Hospitalization, Other)
  Sender: FDA-Public Use
  Company Number: DE-002147023-NVSC2023DE029907

PATIENT
  Sex: Male
  Weight: 72 kg

DRUGS (36)
  1. VALSARTAN [Suspect]
     Active Substance: VALSARTAN
     Indication: Hypertension
     Dosage: UNK
     Route: 065
     Dates: start: 2012, end: 2014
  2. VALSARTAN [Suspect]
     Active Substance: VALSARTAN
     Indication: Essential hypertension
     Dosage: 160 MG, BID (MORNING AND EVENING)
     Route: 065
     Dates: start: 201908
  3. VALSARTAN [Suspect]
     Active Substance: VALSARTAN
     Dosage: 160 MG, QD, (MORNING)
     Route: 065
     Dates: start: 201908
  4. VALSARTAN [Suspect]
     Active Substance: VALSARTAN
     Dosage: 160 MG, QD
     Route: 065
  5. VALSARTAN [Suspect]
     Active Substance: VALSARTAN
     Indication: Hypertension
     Dosage: 1 DOSAGE FORM, QD (1 A PLUS)
     Route: 065
  6. VALSARTAN [Suspect]
     Active Substance: VALSARTAN
     Indication: Essential hypertension
     Dosage: 1 DOSAGE FORM, BID, ONCE IN THE MORNING, ONCE IN THE EVENING
     Route: 065
  7. ATORVASTATIN [Concomitant]
     Active Substance: ATORVASTATIN
     Indication: Product used for unknown indication
     Dosage: 20 MG, QD
     Route: 065
  8. ALLOPURINOL [Concomitant]
     Active Substance: ALLOPURINOL
     Indication: Product used for unknown indication
     Dosage: UNK, QD, 1/2 X 150 MG EVENING
     Route: 065
  9. ALLOPURINOL [Concomitant]
     Active Substance: ALLOPURINOL
     Dosage: UNK, QD, 1/2 X 300 MG EVENING
     Route: 065
  10. MOLSIDOMINE [Concomitant]
     Active Substance: MOLSIDOMINE
     Indication: Product used for unknown indication
     Dosage: 8 MG, QD, EVENING
     Route: 065
  11. TORSEMIDE [Concomitant]
     Active Substance: TORSEMIDE
     Indication: Product used for unknown indication
     Dosage: 10 MG, BID, MORNING AND NOON
     Route: 065
  12. TORSEMIDE [Concomitant]
     Active Substance: TORSEMIDE
     Dosage: 20 MG, QD
     Route: 065
  13. TORSEMIDE [Concomitant]
     Active Substance: TORSEMIDE
     Dosage: 10 MG, QD, ONCE IN THE MORNING, ? AT NOON
     Route: 065
  14. GLUCOBAY [Concomitant]
     Active Substance: ACARBOSE
     Indication: Product used for unknown indication
     Dosage: 100 MG, QD, MORNING
     Route: 065
  15. SPIRIVA [Concomitant]
     Active Substance: TIOTROPIUM BROMIDE MONOHYDRATE
     Indication: Product used for unknown indication
     Dosage: 18 UG, QD, 2 PUFFS
  16. SPIRIVA [Concomitant]
     Active Substance: TIOTROPIUM BROMIDE MONOHYDRATE
     Dosage: 2.5 UG, BID, TWICE IN THE MORNING
     Route: 065
  17. OXYGEN [Concomitant]
     Active Substance: OXYGEN
     Indication: Product used for unknown indication
     Dosage: UNK, 2 TO 3 LITRE AT ROOM TEMPERATURE
     Route: 065
     Dates: start: 20200619, end: 20200619
  18. OXYGEN [Concomitant]
     Active Substance: OXYGEN
     Dosage: 2 L, QH
     Route: 065
     Dates: start: 20200630, end: 20200630
  19. OXYGEN [Concomitant]
     Active Substance: OXYGEN
     Dosage: 2 L
     Route: 042
     Dates: start: 20200928
  20. OXYGEN [Concomitant]
     Active Substance: OXYGEN
     Dosage: UNK, PRN, 2 TO 3 L, IF NEEDED
     Route: 065
     Dates: start: 20200519, end: 20200519
  21. ALLOBETA [Concomitant]
     Indication: Product used for unknown indication
     Dosage: UNK, (300), 1/4 IN THE EVENING
     Route: 065
  22. MSI [Concomitant]
     Active Substance: MORPHINE SULFATE
     Indication: Product used for unknown indication
     Dosage: 5 MG, EVERY 4 HOURS UP TO 6X DAILY
     Route: 058
     Dates: start: 20200630, end: 20200630
  23. MSI [Concomitant]
     Active Substance: MORPHINE SULFATE
     Dosage: UNK UNK, QD, (5), UP TO 6X DAILY
     Route: 058
     Dates: start: 20200707, end: 20200713
  24. PANTOZOL [Concomitant]
     Active Substance: PANTOPRAZOLE SODIUM
     Indication: Product used for unknown indication
     Dosage: 40 MG, QD, MORNING
     Route: 065
  25. PANTOZOL [Concomitant]
     Active Substance: PANTOPRAZOLE SODIUM
     Dosage: 40 MG, BID, (IN MORNING AND EVENING)
     Route: 065
  26. SIMVASTATIN [Concomitant]
     Active Substance: SIMVASTATIN
     Indication: Product used for unknown indication
     Dosage: 20 MG, QD, EVENING
     Route: 065
  27. ISDN [Concomitant]
     Indication: Product used for unknown indication
     Dosage: 20 MG, QD
     Route: 065
  28. MOLSIDOMINE [Concomitant]
     Active Substance: MOLSIDOMINE
     Indication: Product used for unknown indication
     Dosage: 8 MG, QD, EVENING
     Route: 065
     Dates: start: 20200528, end: 20200601
  29. ATROVENT [Concomitant]
     Active Substance: IPRATROPIUM BROMIDE
     Indication: Product used for unknown indication
     Dosage: UNK, QID
  30. CANDESARTAN [Concomitant]
     Active Substance: CANDESARTAN
     Indication: Product used for unknown indication
     Dosage: 16 MG, QD, MORNING
     Route: 065
     Dates: start: 20200528, end: 20200601
  31. CANDESARTAN [Concomitant]
     Active Substance: CANDESARTAN
     Dosage: 1.5 DOSAGE FORM, QD, (ONE TABLET IN THE MORNING, HALF OF A TABLET IN THE EVENING)
     Route: 065
  32. POLYETHYLENE GLYCOLS [Concomitant]
     Active Substance: POLYETHYLENE GLYCOLS
     Indication: Product used for unknown indication
     Dosage: UNK, (1 UP TO MAX.4 AS NEEDED) (SOLID PIECES, PER OS)
     Route: 065
     Dates: start: 20200928
  33. NITRENDIPINE [Concomitant]
     Active Substance: NITRENDIPINE
     Indication: Hypertension
     Dosage: 10 UNK, BID (ONE IN THE MORNING AND ONE IN THE EVENING)
     Route: 065
     Dates: start: 201805
  34. NITRENDIPINE [Concomitant]
     Active Substance: NITRENDIPINE
     Dosage: 10 UNK, BID (ONE IN THE MORNING AND ONE IN THE EVENING)
     Route: 065
  35. BISOPROLOL [Concomitant]
     Active Substance: BISOPROLOL
     Indication: Product used for unknown indication
     Dosage: UNK
     Route: 065
     Dates: start: 20190806
  36. PENTOXIFYLLINE [Concomitant]
     Active Substance: PENTOXIFYLLINE
     Indication: Product used for unknown indication
     Dosage: UNK
     Route: 065

REACTIONS (26)
  - Bronchial carcinoma [Fatal]
  - Bronchial obstruction [Fatal]
  - Hyperplasia [Fatal]
  - Carcinoembryonic antigen increased [Fatal]
  - Back pain [Fatal]
  - Metastasis [Fatal]
  - Metastases to spine [Fatal]
  - Neoplasm [Fatal]
  - Blood pressure systolic increased [Recovering/Resolving]
  - Pulmonary oedema [Unknown]
  - Cataract [Unknown]
  - Myocardial ischaemia [Unknown]
  - Myocardial infarction [Unknown]
  - Naevoid melanoma [Unknown]
  - Atrial flutter [Unknown]
  - Pruritus [Unknown]
  - Chills [Unknown]
  - Gait disturbance [Unknown]
  - Abdominal discomfort [Unknown]
  - Infection [Unknown]
  - Diarrhoea [Unknown]
  - Nausea [Unknown]
  - Anxiety [Unknown]
  - Pyrexia [Unknown]
  - Somnolence [Unknown]
  - Decreased appetite [Unknown]

NARRATIVE: CASE EVENT DATE: 20150101
